FAERS Safety Report 21531929 (Version 1)
Quarter: 2022Q4

REPORT INFORMATION
  Report Type: Spontaneous
  Country: US (occurrence: None)
  Receive Date: 20221101
  Receipt Date: 20221101
  Transmission Date: 20230112
  Serious: Yes (Hospitalization, Other)
  Sender: FDA-Public Use
  Company Number: US-Unichem Pharmaceuticals (USA) Inc-UCM202210-001114

PATIENT
  Age: 42 Year
  Sex: Female

DRUGS (3)
  1. TIZANIDINE [Suspect]
     Active Substance: TIZANIDINE
     Indication: Overdose
     Dosage: 4 MG
  2. ESZOPICLONE [Suspect]
     Active Substance: ESZOPICLONE
     Indication: Overdose
     Dosage: 2 MG
  3. HYDROXYZINE [Suspect]
     Active Substance: HYDROXYZINE HYDROCHLORIDE
     Indication: Overdose
     Dosage: 50 MG

REACTIONS (7)
  - Areflexia [Recovered/Resolved]
  - Encephalopathy [Recovered/Resolved]
  - Respiratory acidosis [Recovered/Resolved]
  - Seizure [Recovered/Resolved]
  - Unresponsive to stimuli [Recovered/Resolved]
  - Hypotension [Recovered/Resolved]
  - Overdose [Unknown]
